FAERS Safety Report 6220308-7 (Version None)
Quarter: 2009Q2

REPORT INFORMATION
  Report Type: 
  Country: None (occurrence: None)
  Receive Date: 20090526
  Receipt Date: 20090511
  Transmission Date: 20091009
  Serious: Yes (Life-Threatening)
  Sender: FDA-Public Use
  Company Number: AECAN200900155

PATIENT
  Age: 81 Year
  Sex: Female
  Weight: 40 kg

DRUGS (3)
  1. GAMUNEX [Suspect]
     Indication: IDIOPATHIC THROMBOCYTOPENIC PURPURA
     Dosage: 45 GM; 1X; IV
     Route: 042
     Dates: start: 20090504, end: 20090505
  2. GAMUNEX [Suspect]
     Indication: IDIOPATHIC THROMBOCYTOPENIC PURPURA
     Dosage: 45 GM; 1X; IV
     Route: 042
     Dates: start: 20090504, end: 20090505
  3. PREDNISONE [Concomitant]

REACTIONS (6)
  - DYSPNOEA [None]
  - FLUSHING [None]
  - HYPOTENSION [None]
  - LUNG INFILTRATION [None]
  - TACHYCARDIA [None]
  - WHEEZING [None]
